FAERS Safety Report 18114292 (Version 2)
Quarter: 2020Q3

REPORT INFORMATION
  Report Type: Report from Study
  Country: US (occurrence: US)
  Receive Date: 20200805
  Receipt Date: 20200928
  Transmission Date: 20201103
  Serious: Yes (Life-Threatening)
  Sender: FDA-Public Use
  Company Number: US-TEVA-2020-US-1809594

PATIENT
  Age: 73 Year
  Sex: Male
  Weight: 79.1 kg

DRUGS (17)
  1. 5?FLUOROURACIL [Suspect]
     Active Substance: FLUOROURACIL
     Indication: COLORECTAL CANCER METASTATIC
     Dosage: DATE OF THE LAST DOSE PRIOR TO THE EVENT: 08?MAR?2019
     Route: 040
     Dates: start: 20190128, end: 20190308
  2. SYNTHROID [Concomitant]
     Active Substance: LEVOTHYROXINE SODIUM
     Dates: start: 1999
  3. LOSARTAN. [Concomitant]
     Active Substance: LOSARTAN
     Dates: start: 201712
  4. NAPABUCASIN (BBI608) [Suspect]
     Active Substance: NAPABUCASIN
     Indication: COLORECTAL CANCER METASTATIC
     Dosage: 480 MILLIGRAM DAILY; DATE OF THE LAST DOSE PRIOR TO THE EVENT: 20?MAR?2019
     Route: 048
     Dates: start: 20190125
  5. VITAMIN B6 [Concomitant]
     Active Substance: PYRIDOXINE HYDROCHLORIDE
     Dates: start: 201701
  6. IMODIUM [Concomitant]
     Active Substance: LOPERAMIDE HYDROCHLORIDE
     Dates: start: 20190125
  7. AMLODIPINE [Concomitant]
     Active Substance: AMLODIPINE BESYLATE
     Dates: start: 20190219
  8. LEUCOVORIN. [Suspect]
     Active Substance: LEUCOVORIN
     Route: 042
     Dates: start: 20190322
  9. 5?FLUOROURACIL [Suspect]
     Active Substance: FLUOROURACIL
     Route: 042
     Dates: start: 20190322
  10. IRINOTECAN [Suspect]
     Active Substance: IRINOTECAN
     Indication: COLORECTAL CANCER METASTATIC
     Dosage: DATE OF THE LAST DOSE PRIOR TO THE EVENT: 08?MAR?2019
     Route: 042
     Dates: start: 20190128
  11. ZARXIO (FILGRASTIM SNDZ) [Concomitant]
     Dates: start: 20190221, end: 20190307
  12. MILK THISTLE PLUS (TARAXACUM OFFICINALE ROOT) [Concomitant]
     Dates: start: 2017
  13. IRINOTECAN [Suspect]
     Active Substance: IRINOTECAN
     Route: 042
     Dates: start: 20190322
  14. ZYRTEC [Concomitant]
     Active Substance: CETIRIZINE HYDROCHLORIDE
     Dates: start: 1994
  15. CLONIDINE. [Concomitant]
     Active Substance: CLONIDINE
     Dates: start: 20190207
  16. 5?FLUOROURACIL [Suspect]
     Active Substance: FLUOROURACIL
     Route: 042
     Dates: start: 20190128
  17. LEUCOVORIN. [Suspect]
     Active Substance: LEUCOVORIN
     Indication: COLORECTAL CANCER METASTATIC
     Dosage: DATE OF THE LAST DOSE PRIOR TO THE EVENT: 08?MAR?2019
     Route: 042
     Dates: start: 20190128

REACTIONS (1)
  - Neutrophil count decreased [Recovered/Resolved]

NARRATIVE: CASE EVENT DATE: 20190320
